FAERS Safety Report 4533747-7 (Version None)
Quarter: 2004Q4

REPORT INFORMATION
  Report Type: 
  Country: None (occurrence: None)
  Receive Date: 20041221
  Receipt Date: 20041214
  Transmission Date: 20050328
  Serious: Yes (Hospitalization)
  Sender: FDA-Public Use
  Company Number: PHEH2004US13326

PATIENT
  Age: 32 Year
  Sex: Male

DRUGS (5)
  1. CLOZARIL [Suspect]
     Dosage: 400 MG, QD
     Route: 048
  2. DEPAKOTE [Concomitant]
  3. OLANZAPINE [Concomitant]
  4. ALPRAZOLAM [Suspect]
     Dosage: 0.25 MG, TID
  5. TEMAZEPAM [Suspect]
     Dosage: 15 MG, QD

REACTIONS (5)
  - DEPRESSED LEVEL OF CONSCIOUSNESS [None]
  - DROOLING [None]
  - HERNIA REPAIR [None]
  - MEDICATION ERROR [None]
  - SEDATION [None]
